FAERS Safety Report 7771084 (Version 2)
Quarter: 2017Q4

REPORT INFORMATION
  Report Type: Report from Study
  Country: DE (occurrence: DE)
  Receive Date: 20110124
  Receipt Date: 20171120
  Transmission Date: 20180321
  Serious: Yes (Death, Hospitalization, Other)
  Sender: FDA-Public Use
  Company Number: DE-CELGENEUS-062-50794-11011637

PATIENT

DRUGS (2)
  1. AZACITIDINE. [Suspect]
     Active Substance: AZACITIDINE
     Indication: ACUTE MYELOID LEUKAEMIA
     Dosage: 75 MILLIGRAM/SQ. METER
     Route: 058
  2. SEROTONIN (5HT3) ANTAGONISTS [Concomitant]
     Indication: PREMEDICATION
     Route: 065

REACTIONS (25)
  - Alanine aminotransferase increased [Unknown]
  - Diarrhoea [Unknown]
  - Neutropenia [Unknown]
  - Death [Fatal]
  - Thrombocytopenia [Unknown]
  - Injection site erythema [Unknown]
  - Blood bilirubin increased [Unknown]
  - Arthritis [Unknown]
  - Pyrexia [Unknown]
  - Insomnia [Unknown]
  - Arthralgia [Unknown]
  - Blood alkaline phosphatase increased [Unknown]
  - Blood creatinine increased [Unknown]
  - Nausea [Unknown]
  - Cardiac disorder [Unknown]
  - Febrile infection [Unknown]
  - Adverse event [Unknown]
  - Haemorrhage [Unknown]
  - Skin irritation [Unknown]
  - Aspartate aminotransferase increased [Unknown]
  - Constipation [Unknown]
  - Disease progression [Unknown]
  - Febrile neutropenia [Unknown]
  - Infection [Unknown]
  - Pneumonia [Unknown]
